FAERS Safety Report 22208443 (Version 1)
Quarter: 2023Q2

REPORT INFORMATION
  Report Type: Other
  Country: US (occurrence: US)
  Receive Date: 20230413
  Receipt Date: 20230413
  Transmission Date: 20230722
  Serious: No
  Sender: FDA-Public Use
  Company Number: US-TRAVERE-2022TVT00563

PATIENT
  Age: 14 Year
  Sex: Female

DRUGS (8)
  1. CHOLBAM [Suspect]
     Active Substance: CHOLIC ACID
     Indication: Metabolic disorder
     Route: 048
     Dates: start: 20170719
  2. CHOLBAM [Suspect]
     Active Substance: CHOLIC ACID
     Route: 048
     Dates: start: 20170719
  3. CLARITINE ALLERGY CHILDRENS [Concomitant]
  4. COSOPT [Concomitant]
     Active Substance: DORZOLAMIDE HYDROCHLORIDE\TIMOLOL MALEATE
  5. OMEGA-3 FATTY ACIDS [Concomitant]
     Active Substance: OMEGA-3 FATTY ACIDS
  6. MEPHYTON [Concomitant]
     Active Substance: PHYTONADIONE
  7. OCUVITE [Concomitant]
     Active Substance: VITAMINS
  8. MENAQUINONE 6 [Concomitant]
     Active Substance: MENAQUINONE 6

REACTIONS (1)
  - Influenza [Unknown]
